FAERS Safety Report 15390663 (Version 1)
Quarter: 2018Q3

REPORT INFORMATION
  Report Type: Spontaneous
  Country: US (occurrence: US)
  Receive Date: 20180917
  Receipt Date: 20180917
  Transmission Date: 20181010
  Serious: Yes (Other)
  Sender: FDA-Public Use
  Company Number: US-SA-2017SA265001

PATIENT
  Age: 35 Year
  Sex: Female
  Weight: 74 kg

DRUGS (8)
  1. CARBOPLATIN. [Concomitant]
     Active Substance: CARBOPLATIN
     Route: 065
  2. DECADRON [DEXAMETHASONE ACETATE] [Concomitant]
  3. BENADRYL [ACRIVASTINE] [Concomitant]
     Active Substance: ACRIVASTINE
  4. TAXOTERE [Suspect]
     Active Substance: DOCETAXEL
     Dosage: 139 MG, Q3W
     Route: 042
     Dates: start: 20080228, end: 20080228
  5. HERCEPTIN [Concomitant]
     Active Substance: TRASTUZUMAB
  6. LEVAQUIN [Concomitant]
     Active Substance: LEVOFLOXACIN
  7. TYLENOL [Concomitant]
     Active Substance: ACETAMINOPHEN
  8. TAXOTERE [Suspect]
     Active Substance: DOCETAXEL
     Indication: BREAST CANCER
     Dosage: 139 MG, QCY
     Route: 042
     Dates: start: 20071116, end: 20071116

REACTIONS (2)
  - Psychological trauma [Unknown]
  - Alopecia [Recovering/Resolving]

NARRATIVE: CASE EVENT DATE: 200808
